FAERS Safety Report 17364899 (Version 5)
Quarter: 2020Q4

REPORT INFORMATION
  Report Type: Spontaneous
  Country: CZ (occurrence: CZ)
  Receive Date: 20200204
  Receipt Date: 20201218
  Transmission Date: 20210113
  Serious: Yes (Other)
  Sender: FDA-Public Use
  Company Number: CZ-AUROBINDO-AUR-APL-2020-003032

PATIENT
  Age: 81 Year
  Sex: Female

DRUGS (27)
  1. PARACETAMOL;TRAMADOL [Suspect]
     Active Substance: ACETAMINOPHEN\TRAMADOL
     Indication: NEURALGIA
  2. LANZUL [Concomitant]
     Active Substance: LANSOPRAZOLE
     Indication: DYSPNOEA
     Dosage: UNK
     Route: 048
  3. DETRALEX [Concomitant]
     Active Substance: DIOSMIN\HESPERIDIN
     Indication: DYSPNOEA
     Dosage: UNK
     Route: 065
  4. VERSATIS [Concomitant]
     Active Substance: LIDOCAINE
     Indication: NEURALGIA
     Dosage: 2 DOSAGE FORM, TWO TIMES A DAY
     Route: 065
  5. PREGABALINE CAPSULE, HARD [Suspect]
     Active Substance: PREGABALIN
     Indication: POST HERPETIC NEURALGIA
     Dosage: 50 MILLIGRAM
     Route: 048
  6. DULOXETINE. [Suspect]
     Active Substance: DULOXETINE
     Indication: NEURALGIA
     Dosage: UNK
     Route: 065
  7. CALTRATE [Concomitant]
     Active Substance: CALCIUM CARBONATE
     Indication: PRODUCT USED FOR UNKNOWN INDICATION
     Dosage: UNK
     Route: 065
  8. TAMALIS [Concomitant]
     Indication: PRODUCT USED FOR UNKNOWN INDICATION
     Dosage: UNK
     Route: 048
  9. VERSATIS [Concomitant]
     Active Substance: LIDOCAINE
     Dosage: 1 DOSAGE FORM, ONCE A DAY
     Route: 065
  10. PRESTARIUM [Concomitant]
     Active Substance: PERINDOPRIL
     Indication: DYSPNOEA
     Dosage: UNK
     Route: 048
  11. VENTOLIN [Concomitant]
     Active Substance: ALBUTEROL SULFATE
     Indication: DYSPNOEA
     Dosage: UNK,IN CASE OF DYSPNOEA (1 AS NECESSARY)
     Route: 065
  12. VENTOLIN [Concomitant]
     Active Substance: ALBUTEROL SULFATE
     Indication: WHEEZING
  13. TAPENTADOL [Concomitant]
     Active Substance: TAPENTADOL
     Indication: NEURALGIA
     Dosage: 50 MILLIGRAM
     Route: 065
  14. PARACETAMOL;TRAMADOL [Suspect]
     Active Substance: ACETAMINOPHEN\TRAMADOL
     Indication: BACK PAIN
     Dosage: 1 DOSAGE FORM, TWO TIMES A DAY (1 DOSAGE FORM, BID (75/650 MG))
     Route: 048
  15. BUPRENORPHINE. [Suspect]
     Active Substance: BUPRENORPHINE
     Indication: NEURALGIA
     Dosage: 1/4 MEDICATED PLASTER 35 MCG
     Route: 065
  16. PROPANORM [Concomitant]
     Active Substance: PROPAFENONE
     Indication: DYSPNOEA
     Dosage: UNK
     Route: 048
  17. XYZAL [Concomitant]
     Active Substance: LEVOCETIRIZINE DIHYDROCHLORIDE
     Indication: DYSPNOEA
     Dosage: UNK
     Route: 048
  18. OXAZEPAM. [Concomitant]
     Active Substance: OXAZEPAM
     Indication: DYSPNOEA
     Dosage: UNK
     Route: 048
  19. CAPSAICIN. [Concomitant]
     Active Substance: CAPSAICIN
     Dosage: UNK
     Route: 065
     Dates: start: 201805
  20. MECOBALAMIN;PREGABALIN [Concomitant]
     Indication: PRODUCT USED FOR UNKNOWN INDICATION
     Dosage: UNK
     Route: 065
  21. METYPRED [Concomitant]
     Active Substance: METHYLPREDNISOLONE
     Indication: DYSPNOEA
     Dosage: UNK
     Route: 065
  22. CAPSAICIN. [Concomitant]
     Active Substance: CAPSAICIN
     Indication: PAIN
     Dosage: 4 DOSAGE FORM, ONCE A DAY (QID (TOTAL OF 4X))
     Route: 065
  23. PREGABALINE CAPSULE, HARD [Suspect]
     Active Substance: PREGABALIN
     Indication: NEURALGIA
  24. GABAPENTIN. [Suspect]
     Active Substance: GABAPENTIN
     Indication: NEURALGIA
     Dosage: UNK
     Route: 065
  25. STILNOX [Concomitant]
     Active Substance: ZOLPIDEM TARTRATE
     Indication: DYSPNOEA
     Dosage: UNK
     Route: 065
  26. ROSUCARD [Concomitant]
     Active Substance: ROSUVASTATIN CALCIUM
     Indication: DYSPNOEA
     Dosage: UNK
     Route: 048
  27. RISMYL [Concomitant]
     Indication: DYSPNOEA
     Dosage: UNK
     Route: 048

REACTIONS (12)
  - Hyperhidrosis [Recovered/Resolved]
  - Adverse reaction [Unknown]
  - Constipation [Recovered/Resolved]
  - Muscle spasms [Recovered/Resolved]
  - Chills [Recovered/Resolved]
  - Seizure [Recovered/Resolved]
  - Tachycardia [Recovered/Resolved]
  - Memory impairment [Recovered/Resolved]
  - Arthralgia [Recovered/Resolved]
  - Tremor [Recovered/Resolved]
  - Product use in unapproved indication [Unknown]
  - Alopecia [Not Recovered/Not Resolved]
